FAERS Safety Report 4864905-X (Version None)
Quarter: 2005Q4

REPORT INFORMATION
  Report Type: 
  Country: None (occurrence: None)
  Receive Date: 20051201
  Receipt Date: 20050812
  Transmission Date: 20060501
  Serious: No
  Sender: FDA-Public Use
  Company Number: 2005PV001141

PATIENT
  Age: 85 Year
  Sex: Female
  Weight: 81.6475 kg

DRUGS (5)
  1. BYETTA [Suspect]
     Indication: DIABETES MELLITUS NON-INSULIN-DEPENDENT
     Dosage: 5 MCG; BID; SC
     Route: 058
     Dates: start: 20050802
  2. AMARYL [Concomitant]
  3. ACTOS [Concomitant]
  4. HYZAAR [Concomitant]
  5. TOPROL-XL [Concomitant]

REACTIONS (2)
  - DEPRESSED MOOD [None]
  - NAUSEA [None]
